FAERS Safety Report 9253760 (Version 2)
Quarter: 2013Q3

REPORT INFORMATION
  Report Type: Spontaneous
  Country: US (occurrence: US)
  Receive Date: 20130425
  Receipt Date: 20130725
  Transmission Date: 20140515
  Serious: No
  Sender: FDA-Public Use
  Company Number: US-PFIZER INC-2013127726

PATIENT
  Age: 68 Year
  Sex: Female
  Weight: 90.7 kg

DRUGS (5)
  1. LEVOXYL [Suspect]
     Indication: THYROID HORMONE REPLACEMENT THERAPY
     Dosage: 150 UG, 1X/DAY
  2. XANAX [Concomitant]
     Indication: ANXIETY
     Dosage: 20 MG, 1X/DAY
  3. METFORMIN [Concomitant]
     Indication: DIABETES MELLITUS
     Dosage: 1000 MG, 1X/DAY
  4. TYLENOL WITH CODEINE [Concomitant]
     Dosage: UNK, EVERY 4 HRS
  5. GABAPENTIN [Concomitant]
     Dosage: 300 MG, 3X/DAY

REACTIONS (2)
  - Somnolence [Unknown]
  - Weight increased [Unknown]
